FAERS Safety Report 8152336-9 (Version None)
Quarter: 2012Q1

REPORT INFORMATION
  Report Type: 
  Country: None (occurrence: None)
  Receive Date: 20120221
  Receipt Date: 20120212
  Transmission Date: 20120608
  Serious: Yes (Hospitalization)
  Sender: FDA-Public Use
  Company Number: US-SANOFI-AVENTIS-2012SA009316

PATIENT
  Sex: Female

DRUGS (2)
  1. METFORMIN HCL [Concomitant]
  2. LANTUS [Suspect]
     Dosage: DOSE:34 UNIT(S)
     Route: 058

REACTIONS (2)
  - BLOOD GLUCOSE INCREASED [None]
  - NEPHROLITHIASIS [None]
